FAERS Safety Report 10266177 (Version 1)
Quarter: 2014Q2

REPORT INFORMATION
  Report Type: Spontaneous
  Country: US (occurrence: US)
  Receive Date: 20140627
  Receipt Date: 20140627
  Transmission Date: 20141212
  Serious: Yes (Other)
  Sender: FDA-Public Use
  Company Number: CHPA2014US008504

PATIENT
  Age: 74 Year
  Sex: Female

DRUGS (3)
  1. VOLTAREN GEL [Suspect]
     Indication: PAIN
     Dosage: 2 G, PRN
     Route: 061
     Dates: start: 20130222
  2. VOLTAREN GEL [Suspect]
     Indication: BACK PAIN
  3. VOLTAREN GEL [Suspect]
     Indication: OFF LABEL USE

REACTIONS (5)
  - Spinal column injury [Recovered/Resolved]
  - Fall [Recovered/Resolved]
  - Back pain [Not Recovered/Not Resolved]
  - Rash [Recovering/Resolving]
  - Drug administered at inappropriate site [Unknown]
